FAERS Safety Report 8530372-8 (Version None)
Quarter: 2012Q3

REPORT INFORMATION
  Report Type: 
  Country: None (occurrence: None)
  Receive Date: 20120723
  Receipt Date: 20120709
  Transmission Date: 20120928
  Serious: Yes (Death)
  Sender: FDA-Public Use
  Company Number: AU-CELGENEUS-008-21880-12070508

PATIENT
  Sex: Male

DRUGS (7)
  1. VALACICLOVIR [Concomitant]
     Route: 065
     Dates: start: 20111201
  2. REVLIMID [Suspect]
     Indication: MULTIPLE MYELOMA
     Dosage: 25 MILLIGRAM
     Route: 048
     Dates: start: 20120224
  3. LACTULOSE [Concomitant]
     Route: 065
     Dates: start: 20110701
  4. OXYCONTIN [Concomitant]
     Route: 065
     Dates: start: 20110201
  5. DEXAMETHASONE [Suspect]
     Indication: MULTIPLE MYELOMA
     Dosage: 40 MILLIGRAM
     Route: 048
     Dates: start: 20120224
  6. AMLODIPINE [Concomitant]
     Route: 065
     Dates: start: 20101201
  7. DOCUSATE SENNA [Concomitant]
     Route: 065
     Dates: start: 20110701

REACTIONS (1)
  - DEATH [None]
